FAERS Safety Report 20210520 (Version 2)
Quarter: 2022Q1

REPORT INFORMATION
  Report Type: Spontaneous
  Country: DE (occurrence: DE)
  Receive Date: 20211221
  Receipt Date: 20220125
  Transmission Date: 20220423
  Serious: Yes (Other)
  Sender: FDA-Public Use
  Company Number: DE-SUN PHARMACEUTICAL INDUSTRIES LTD-2021RR-321191

PATIENT
  Age: 26 Year
  Sex: Female

DRUGS (2)
  1. FINGOLIMOD [Suspect]
     Active Substance: FINGOLIMOD
     Indication: Relapsing-remitting multiple sclerosis
     Dosage: UNK
     Route: 065
  2. METHYLPREDNISOLONE [Suspect]
     Active Substance: METHYLPREDNISOLONE
     Indication: Relapsing-remitting multiple sclerosis
     Dosage: 1 GRAM, DAILY
     Route: 042

REACTIONS (6)
  - Disease recurrence [Recovering/Resolving]
  - Lymphopenia [Unknown]
  - Apathy [Not Recovered/Not Resolved]
  - Affect lability [Not Recovered/Not Resolved]
  - Aphasia [Not Recovered/Not Resolved]
  - Treatment failure [Not Recovered/Not Resolved]
